FAERS Safety Report 6361970-8 (Version None)
Quarter: 2009Q3

REPORT INFORMATION
  Report Type: 
  Country: None (occurrence: None)
  Receive Date: 20090918
  Receipt Date: 20090917
  Transmission Date: 20100115
  Serious: Yes (Hospitalization)
  Sender: FDA-Public Use
  Company Number: US-ROXANE LABORATORIES, INC.-2009-RO-00947RO

PATIENT
  Age: 45 Year
  Sex: Male

DRUGS (2)
  1. CLARITHROMYCIN [Suspect]
     Indication: ACUTE SINUSITIS
     Dosage: 1000 MG
     Route: 048
  2. SODIUM BICARBONATE IN PLASTIC CONTAINER [Concomitant]
     Indication: RHABDOMYOLYSIS
     Route: 042

REACTIONS (1)
  - RHABDOMYOLYSIS [None]
